FAERS Safety Report 5070234-4 (Version None)
Quarter: 2006Q3

REPORT INFORMATION
  Report Type: 
  Country: None (occurrence: None)
  Receive Date: 20060731
  Receipt Date: 20060713
  Transmission Date: 20061208
  Serious: Yes (Life-Threatening, Hospitalization)
  Sender: FDA-Public Use
  Company Number: GB-2006-017369

PATIENT
  Age: 76 Year
  Sex: Male
  Weight: 68.7 kg

DRUGS (3)
  1. QUADRAMET [Suspect]
     Indication: PROSTATE CANCER
     Dosage: 2542 MBQ, 1 DOSE, INTRAVENOUS
     Route: 042
     Dates: start: 20060615, end: 20060615
  2. ADALAT [Concomitant]
  3. ALBUTEROL SPIROS [Concomitant]

REACTIONS (4)
  - ACUTE PULMONARY OEDEMA [None]
  - ATRIAL FIBRILLATION [None]
  - BLOOD PRESSURE SYSTOLIC INCREASED [None]
  - MYOCARDIAL INFARCTION [None]
